FAERS Safety Report 6714372-6 (Version None)
Quarter: 2010Q2

REPORT INFORMATION
  Report Type: 
  Country: None (occurrence: None)
  Receive Date: 20100506
  Receipt Date: 20100426
  Transmission Date: 20101027
  Serious: Yes (Other)
  Sender: FDA-Public Use
  Company Number: PT-ABBOTT-10P-130-0640562-00

PATIENT
  Age: 17 Year
  Sex: Male

DRUGS (1)
  1. HUMIRA [Suspect]
     Indication: UVEITIS
     Route: 058
     Dates: start: 20091230, end: 20100401

REACTIONS (3)
  - BLINDNESS TRANSIENT [None]
  - SEASONAL ALLERGY [None]
  - UVEITIS [None]
